FAERS Safety Report 6199156-2 (Version None)
Quarter: 2009Q2

REPORT INFORMATION
  Report Type: 
  Country: None (occurrence: None)
  Receive Date: 20090522
  Receipt Date: 20090218
  Transmission Date: 20091009
  Serious: No
  Sender: FDA-Public Use
  Company Number: A0769323A

PATIENT
  Age: 60 Year
  Sex: Male

DRUGS (7)
  1. VERAMYST [Suspect]
     Dosage: 2SPR PER DAY
     Route: 045
     Dates: start: 20070801, end: 20090208
  2. ATIVAN [Concomitant]
  3. AVODART [Concomitant]
  4. PRAVACHOL [Concomitant]
  5. SYNTHROID [Concomitant]
  6. ASPIRIN [Concomitant]
  7. ANTIVERT [Concomitant]

REACTIONS (1)
  - DIZZINESS [None]
